FAERS Safety Report 9166001 (Version 1)
Quarter: 2013Q1

REPORT INFORMATION
  Report Type: Spontaneous
  Country: GR (occurrence: GR)
  Receive Date: 20130315
  Receipt Date: 20130315
  Transmission Date: 20140127
  Serious: Yes (Death)
  Sender: FDA-Public Use
  Company Number: GR-ROXANE LABORATORIES, INC.-2013-RO-00374RO

PATIENT
  Age: 72 Year
  Sex: Female

DRUGS (5)
  1. LITHIUM CARBONATE [Suspect]
     Indication: BIPOLAR DISORDER
     Dosage: 900 MG
  2. AMLODIPINE [Suspect]
     Dosage: 5 MG
  3. IRBESARTAN [Suspect]
     Dosage: 150 MG
  4. ESCITALOPRAM OXALATE [Suspect]
     Dosage: 20 MG
  5. BUSPIRONE HYDROCHLORIDE [Suspect]
     Dosage: 10 MG

REACTIONS (3)
  - Neuroleptic malignant syndrome [Fatal]
  - Cardio-respiratory arrest [Fatal]
  - Acute respiratory distress syndrome [Fatal]
